FAERS Safety Report 16051060 (Version 8)
Quarter: 2025Q2

REPORT INFORMATION
  Report Type: Spontaneous
  Country: NL (occurrence: NL)
  Receive Date: 20190308
  Receipt Date: 20250530
  Transmission Date: 20250717
  Serious: Yes (Death, Other)
  Sender: AUROBINDO
  Company Number: NL-AUROBINDO-AUR-APL-2019-011873

PATIENT
  Age: 29 Year
  Sex: Female

DRUGS (3)
  1. CLOZAPINE [Suspect]
     Active Substance: CLOZAPINE
     Indication: Schizophrenia
     Route: 065
     Dates: start: 2013
  2. CLOZAPINE [Suspect]
     Active Substance: CLOZAPINE
     Indication: Psychotic disorder
     Route: 065
     Dates: start: 20130427
  3. CLOZAPINE [Suspect]
     Active Substance: CLOZAPINE
     Indication: Product used for unknown indication
     Route: 065
     Dates: start: 20130427

REACTIONS (37)
  - Drug hypersensitivity [Fatal]
  - Cardiac arrest [Fatal]
  - Pericarditis [Fatal]
  - Gastroenteritis [Fatal]
  - Cardiac disorder [Fatal]
  - Cardiac failure [Fatal]
  - Myocarditis [Fatal]
  - Antipsychotic drug level increased [Not Recovered/Not Resolved]
  - Apathy [Unknown]
  - Psychotic disorder [Unknown]
  - Vomiting [Recovered/Resolved with Sequelae]
  - Pyrexia [Unknown]
  - Dyspnoea [Unknown]
  - Constricted affect [Unknown]
  - Chest pain [Unknown]
  - Diarrhoea [Recovered/Resolved with Sequelae]
  - Dependent personality disorder [Unknown]
  - Mental disorder [Unknown]
  - Leukocytosis [Unknown]
  - Myocardial infarction [Unknown]
  - Dizziness [Unknown]
  - Fatigue [Unknown]
  - Malaise [Unknown]
  - Hypotension [Unknown]
  - Back pain [Unknown]
  - Abdominal pain upper [Unknown]
  - Glycosylated haemoglobin increased [Unknown]
  - Pallor [Unknown]
  - Panic attack [Unknown]
  - Febrile convulsion [Unknown]
  - Cough [Unknown]
  - Sluggishness [Unknown]
  - Neglect of personal appearance [Unknown]
  - Influenza [Unknown]
  - Withdrawal syndrome [Recovered/Resolved]
  - Eosinophilia [Unknown]
  - Oedema [Unknown]

NARRATIVE: CASE EVENT DATE: 20030101
